FAERS Safety Report 5516014-4 (Version None)
Quarter: 2007Q4

REPORT INFORMATION
  Report Type: 
  Country: None (occurrence: None)
  Receive Date: 20071114
  Receipt Date: 20061115
  Transmission Date: 20080405
  Serious: No
  Sender: FDA-Public Use
  Company Number: A0627424A

PATIENT
  Age: 30 Year
  Sex: Female

DRUGS (1)
  1. COMMIT [Suspect]

REACTIONS (2)
  - CONSTIPATION [None]
  - FLATULENCE [None]
